FAERS Safety Report 8008083-7 (Version None)
Quarter: 2011Q4

REPORT INFORMATION
  Report Type: 
  Country: None (occurrence: None)
  Receive Date: 20111227
  Receipt Date: 20111221
  Transmission Date: 20120403
  Serious: Yes (Other)
  Sender: FDA-Public Use
  Company Number: PHHY2011CA46375

PATIENT
  Sex: Female
  Weight: 111.11 kg

DRUGS (7)
  1. GILENYA [Suspect]
     Indication: RELAPSING-REMITTING MULTIPLE SCLEROSIS
     Dosage: 0.5 MG, DAILY
     Route: 048
     Dates: start: 20110518
  2. REACTINE                                /CAN/ [Concomitant]
  3. SYMBICORT [Concomitant]
  4. NEXIUM [Concomitant]
  5. CIPROFLOX ^APM^ [Concomitant]
  6. VITAMIN D [Concomitant]
  7. ORTHO TRI-CYCLEN [Concomitant]

REACTIONS (7)
  - CENTRAL NERVOUS SYSTEM LESION [None]
  - PARAESTHESIA [None]
  - GOITRE [None]
  - LYMPHADENOPATHY [None]
  - LYMPHOCYTE COUNT DECREASED [None]
  - MUSCULAR WEAKNESS [None]
  - HEADACHE [None]
